FAERS Safety Report 8142921-2 (Version None)
Quarter: 2012Q1

REPORT INFORMATION
  Report Type: 
  Country: None (occurrence: None)
  Receive Date: 20120217
  Receipt Date: 20120209
  Transmission Date: 20120608
  Serious: Yes (Hospitalization)
  Sender: FDA-Public Use
  Company Number: GB-BIOGENIDEC-2012BI005118

PATIENT
  Sex: Male

DRUGS (2)
  1. AVONEX [Suspect]
     Indication: MULTIPLE SCLEROSIS
     Route: 030
     Dates: start: 20110101, end: 20110101
  2. AVONEX [Suspect]
     Route: 030
     Dates: start: 20111001

REACTIONS (3)
  - UPPER LIMB FRACTURE [None]
  - FEELING ABNORMAL [None]
  - FALL [None]
